FAERS Safety Report 8695164 (Version 2)
Quarter: 2013Q4

REPORT INFORMATION
  Report Type: Spontaneous
  Country: US (occurrence: US)
  Receive Date: 20120731
  Receipt Date: 20131101
  Transmission Date: 20140711
  Serious: No
  Sender: FDA-Public Use
  Company Number: US-009507513-1207USA011565

PATIENT
  Age: 49 Year
  Sex: Male

DRUGS (1)
  1. INTEGRILIN [Suspect]
     Indication: CHEST PAIN
     Dosage: 1 DF, UNK
     Route: 042
     Dates: start: 20120624, end: 20120624

REACTIONS (3)
  - Hypersensitivity [Recovered/Resolved]
  - Exophthalmos [Recovered/Resolved]
  - Rash macular [Recovered/Resolved]
